FAERS Safety Report 8852156 (Version 2)
Quarter: 2014Q2

REPORT INFORMATION
  Report Type: Spontaneous
  Country: GB (occurrence: GB)
  Receive Date: 20121022
  Receipt Date: 20140620
  Transmission Date: 20141212
  Serious: Yes (Life-Threatening)
  Sender: FDA-Public Use
  Company Number: GB-PFIZER INC-2012260521

PATIENT
  Age: 73 Year
  Sex: Male
  Weight: 88.5 kg

DRUGS (8)
  1. TRIMETHOPRIM [Suspect]
     Indication: INFECTION
     Dosage: 200 MG, 2X/DAY
     Route: 048
     Dates: start: 20120830, end: 20120925
  2. LISINOPRIL [Suspect]
     Dosage: UNK
     Route: 065
  3. ATENOLOL [Suspect]
     Dosage: UNK
     Route: 065
  4. ASPIRIN COATED [Concomitant]
     Dosage: UNK
     Route: 065
  5. GLYCERYL TRINITRATE [Concomitant]
     Dosage: UNK
     Route: 065
  6. LEVOTHYROXINE [Concomitant]
     Dosage: UNK
     Route: 065
  7. OMEPRAZOLE [Concomitant]
     Dosage: UNK
     Route: 065
  8. SIMVASTATIN [Concomitant]
     Dosage: UNK
     Route: 065

REACTIONS (5)
  - Cardiac arrest [Recovered/Resolved]
  - Renal failure acute [Recovered/Resolved]
  - Bradycardia [Recovered/Resolved]
  - Hyperkalaemia [Recovered/Resolved]
  - Presyncope [Recovered/Resolved]
